FAERS Safety Report 7490580-4 (Version None)
Quarter: 2011Q2

REPORT INFORMATION
  Report Type: 
  Country: None (occurrence: None)
  Receive Date: 20110517
  Receipt Date: 20110517
  Transmission Date: 20111010
  Serious: No
  Sender: FDA-Public Use
  Company Number: None

PATIENT
  Age: 57 Year
  Sex: Male
  Weight: 87.5442 kg

DRUGS (1)
  1. RISPERIDONE [Suspect]
     Indication: MAJOR DEPRESSION
     Dosage: 2MG BID PO
     Route: 048
     Dates: start: 20110315, end: 20110316

REACTIONS (2)
  - SPEECH DISORDER [None]
  - BRUXISM [None]
